FAERS Safety Report 21872583 (Version 1)
Quarter: 2023Q1

REPORT INFORMATION
  Report Type: Spontaneous
  Country: US (occurrence: US)
  Receive Date: 20230117
  Receipt Date: 20230117
  Transmission Date: 20230417
  Serious: Yes (Death)
  Sender: FDA-Public Use
  Company Number: US-PROCTER_AND_GAMBLE-PH23000327

PATIENT
  Sex: Male

DRUGS (1)
  1. PEPTO-BISMOL [Suspect]
     Active Substance: BISMUTH SUBSALICYLATE
     Dosage: DRANK A WHOLE FULL BOTTLE
     Route: 048

REACTIONS (2)
  - Death [Fatal]
  - Overdose [Fatal]
